FAERS Safety Report 7810363-2 (Version None)
Quarter: 2011Q4

REPORT INFORMATION
  Report Type: 
  Country: None (occurrence: None)
  Receive Date: 20111012
  Receipt Date: 20111006
  Transmission Date: 20120403
  Serious: Yes (Hospitalization, Other)
  Sender: FDA-Public Use
  Company Number: HK-ROXANE LABORATORIES, INC.-2011-RO-01425RO

PATIENT
  Age: 21 Year
  Sex: Female

DRUGS (1)
  1. METHADONE HCL [Suspect]
     Dosage: 800 MG
     Route: 048

REACTIONS (4)
  - ACCIDENTAL OVERDOSE [None]
  - HYPOGLYCAEMIA [None]
  - VENTRICULAR EXTRASYSTOLES [None]
  - PNEUMONIA STAPHYLOCOCCAL [None]
